FAERS Safety Report 4285906-9 (Version None)
Quarter: 2004Q1

REPORT INFORMATION
  Report Type: 
  Country: None (occurrence: None)
  Receive Date: 20040205
  Receipt Date: 20031017
  Transmission Date: 20041129
  Serious: Yes (Death)
  Sender: FDA-Public Use
  Company Number: CA-GLAXOSMITHKLINE-A0431089A

PATIENT
  Age: 55 Year
  Sex: Male
  Weight: 61.4 kg

DRUGS (1)
  1. TRIZIVIR [Suspect]
     Indication: HIV INFECTION
     Dosage: 1TAB TWICE PER DAY
     Route: 048
     Dates: start: 20030213, end: 20030223

REACTIONS (3)
  - DEATH [None]
  - DIARRHOEA [None]
  - PRURITUS [None]
